FAERS Safety Report 23566715 (Version 1)
Quarter: 2024Q1

REPORT INFORMATION
  Report Type: Spontaneous
  Country: US (occurrence: US)
  Receive Date: 20240226
  Receipt Date: 20240226
  Transmission Date: 20240410
  Serious: No
  Sender: FDA-Public Use
  Company Number: US-AMNEAL PHARMACEUTICALS-2023-AMRX-01301

PATIENT
  Sex: Male
  Weight: 90.703 kg

DRUGS (17)
  1. RYTARY [Suspect]
     Active Substance: CARBIDOPA\LEVODOPA
     Indication: Parkinson^s disease
     Dosage: 1 CAPSULES, QID (36.25MG/145MG)
     Route: 048
     Dates: end: 20230330
  2. RYTARY [Suspect]
     Active Substance: CARBIDOPA\LEVODOPA
     Dosage: 1 CAPSULES, QID (48.75MG/195MG)
     Route: 048
     Dates: end: 20230330
  3. RYTARY [Suspect]
     Active Substance: CARBIDOPA\LEVODOPA
     Dosage: 1 CAPSULES, QID (61.25MG/245MG)
     Route: 048
     Dates: start: 20230418
  4. RYTARY [Suspect]
     Active Substance: CARBIDOPA\LEVODOPA
     Dosage: 1 CAPSULES, QID (48.75MG/195MG)
     Route: 048
     Dates: start: 20230822
  5. HYDROCHLOROTHIAZIDE\VALSARTAN [Concomitant]
     Active Substance: HYDROCHLOROTHIAZIDE\VALSARTAN
     Indication: Hypertension
     Dosage: 320 MG/25 MG
     Route: 065
  6. ZOLOFT [Concomitant]
     Active Substance: SERTRALINE HYDROCHLORIDE
     Indication: Anxiety
     Dosage: 3 TABLETS, 1 /DAY
     Route: 065
  7. DOXYCYCLINE [Concomitant]
     Active Substance: DOXYCYCLINE
     Indication: Acne
     Dosage: 100 MILLIGRAM, 1 /DAY
     Route: 065
  8. TAMSULOSIN [Concomitant]
     Active Substance: TAMSULOSIN
     Indication: Prostate infection
     Dosage: 4 MILLIGRAM, 1 /DAY
     Route: 065
  9. WELLBUTRIN [Concomitant]
     Active Substance: BUPROPION HYDROCHLORIDE
     Indication: Depression
     Dosage: 150 MILLIGRAM, 1 /DAY
     Route: 065
  10. LOVASTATIN [Concomitant]
     Active Substance: LOVASTATIN
     Indication: Blood cholesterol increased
     Dosage: 40 MILLIGRAM, 1 /DAY
     Route: 065
  11. OMEPRAZOLE [Concomitant]
     Active Substance: OMEPRAZOLE
     Indication: Gastrooesophageal reflux disease
     Dosage: 2 CAPSULES, 1 /DAY
     Route: 065
  12. VITAMINS NOS [Concomitant]
     Active Substance: VITAMINS
     Indication: Supplementation therapy
     Dosage: UNK UNK, 1 /DAY
     Route: 065
  13. ALLEGRA [Concomitant]
     Active Substance: FEXOFENADINE HYDROCHLORIDE
     Indication: Hypersensitivity
     Dosage: 180 MILLIGRAM, 1 /DAY
     Route: 065
  14. VITAMIN B12 [Concomitant]
     Active Substance: CYANOCOBALAMIN
     Indication: Vitamin supplementation
     Dosage: 1000 MICROGRAM, 1 /DAY
     Route: 065
  15. VITAMIN D3 [Concomitant]
     Active Substance: CHOLECALCIFEROL
     Indication: Vitamin supplementation
     Dosage: 12.5 MICROGRAM, 1 /DAY
     Route: 065
  16. VITAMIN E [Concomitant]
     Active Substance: .ALPHA.-TOCOPHEROL
     Indication: Vitamin supplementation
     Dosage: 180 MICROGRAM, 1 /DAY
     Route: 065
  17. CALCIUM CITRATE\CHOLECALCIFEROL [Concomitant]
     Active Substance: CALCIUM CITRATE\CHOLECALCIFEROL
     Indication: Mineral supplementation
     Dosage: 400 MICROGRAM, BID
     Route: 065

REACTIONS (4)
  - Foot deformity [Recovering/Resolving]
  - Hypoaesthesia [Recovering/Resolving]
  - Drug intolerance [Recovering/Resolving]
  - Dyskinesia [Recovering/Resolving]
